FAERS Safety Report 7045997-9 (Version None)
Quarter: 2010Q4

REPORT INFORMATION
  Report Type: 
  Country: None (occurrence: None)
  Receive Date: 20101014
  Receipt Date: 20101007
  Transmission Date: 20110411
  Serious: Yes (Hospitalization, Other)
  Sender: FDA-Public Use
  Company Number: JP-PFIZER INC-2010111609

PATIENT
  Age: 44 Year
  Sex: Male

DRUGS (9)
  1. NOVASTAN [Suspect]
     Indication: HEPARIN-INDUCED THROMBOCYTOPENIA
     Dosage: 0.7 MCG/KG/MIN
     Route: 041
     Dates: start: 20091001, end: 20091002
  2. NOVASTAN [Suspect]
     Dosage: 0.6 MCG/KG/MIN
     Route: 041
     Dates: start: 20091002, end: 20091009
  3. HEPARIN SODIUM [Concomitant]
     Dosage: UNK
     Route: 051
     Dates: start: 20090920
  4. PN TWIN [Concomitant]
     Dosage: 2200 ML, DAILY
     Route: 042
     Dates: start: 20091001, end: 20091007
  5. WARFARIN [Concomitant]
     Dosage: 3 MG, DAILY
     Route: 048
     Dates: start: 20091005, end: 20100304
  6. DAI-KENCHU-TO [Concomitant]
     Dosage: 7.5 GM, DAILY
     Route: 048
     Dates: start: 20091005, end: 20091105
  7. GASTER [Concomitant]
     Dosage: 40 MG, DAILY
     Route: 048
     Dates: start: 20091005, end: 20091011
  8. BIOFERMIN R [Concomitant]
     Dosage: 3 GM, DAILY
     Route: 048
     Dates: start: 20091005
  9. MINOCYCLINE HCL [Concomitant]
     Indication: PROPHYLAXIS
     Dosage: 200 MG, DAILY
     Route: 048
     Dates: start: 20091005, end: 20091011

REACTIONS (3)
  - CHOLECYSTITIS ACUTE [None]
  - DUODENAL ULCER [None]
  - HEPATIC FUNCTION ABNORMAL [None]
